FAERS Safety Report 4481163-9 (Version None)
Quarter: 2004Q4

REPORT INFORMATION
  Report Type: 
  Country: None (occurrence: None)
  Receive Date: 20041021
  Receipt Date: 20041012
  Transmission Date: 20050328
  Serious: Yes (Hospitalization)
  Sender: FDA-Public Use
  Company Number: US-MERCK-0410USA01727

PATIENT
  Age: 46 Year
  Sex: Female

DRUGS (4)
  1. VIOXX [Suspect]
     Indication: PAIN
     Route: 048
     Dates: end: 20040929
  2. VIOXX [Suspect]
     Indication: INFLAMMATION
     Route: 048
     Dates: end: 20040929
  3. PRINIVIL [Concomitant]
     Route: 065
  4. BISOPROLOL [Concomitant]
     Route: 065

REACTIONS (4)
  - CHEST PAIN [None]
  - DYSPEPSIA [None]
  - HEADACHE [None]
  - PRURITUS GENERALISED [None]
